FAERS Safety Report 10090710 (Version 2)
Quarter: 2014Q2

REPORT INFORMATION
  Report Type: Spontaneous
  Country: BE (occurrence: BE)
  Receive Date: 20140421
  Receipt Date: 20140530
  Transmission Date: 20141212
  Serious: Yes (Hospitalization, Disabling, Other)
  Sender: FDA-Public Use
  Company Number: BE-ELI_LILLY_AND_COMPANY-BE201404004052

PATIENT
  Age: 75 Year
  Sex: Male

DRUGS (2)
  1. ZYPADHERA [Suspect]
     Indication: PSYCHOTIC DISORDER
     Dosage: 300 MG, MONTHLY (1/M)
     Route: 030
     Dates: start: 20130822
  2. TENORMIN [Concomitant]
     Indication: PRODUCT USED FOR UNKNOWN INDICATION
     Dosage: 100 MG, UNK
     Route: 048

REACTIONS (10)
  - Contusion [Unknown]
  - Paresis [Recovering/Resolving]
  - Muscle rupture [Unknown]
  - Generalised tonic-clonic seizure [Recovered/Resolved]
  - Coma [Recovered/Resolved]
  - Anaemia [Unknown]
  - Rhabdomyolysis [Unknown]
  - Alanine aminotransferase increased [Unknown]
  - Drug dose omission [Recovered/Resolved]
  - Aspartate aminotransferase increased [Unknown]
